FAERS Safety Report 8423493-1 (Version None)
Quarter: 2012Q2

REPORT INFORMATION
  Report Type: 
  Country: None (occurrence: None)
  Receive Date: 20120608
  Receipt Date: 20120606
  Transmission Date: 20120825
  Serious: No
  Sender: FDA-Public Use
  Company Number: US-TEVA-341818USA

PATIENT
  Sex: Female

DRUGS (1)
  1. ENJUVIA [Suspect]
     Indication: MENOPAUSAL SYMPTOMS
     Route: 048

REACTIONS (3)
  - NIGHT SWEATS [None]
  - DRUG INEFFECTIVE [None]
  - INSOMNIA [None]
